FAERS Safety Report 15275711 (Version 4)
Quarter: 2022Q2

REPORT INFORMATION
  Report Type: Spontaneous
  Country: US (occurrence: US)
  Receive Date: 20180814
  Receipt Date: 20220422
  Transmission Date: 20220720
  Serious: Yes (Hospitalization)
  Sender: FDA-Public Use
  Company Number: US-CELLTRION INC.-2018US021215

PATIENT

DRUGS (3)
  1. INFLECTRA [Suspect]
     Active Substance: INFLIXIMAB-DYYB
     Indication: Psoriatic arthropathy
     Dosage: 300 MILLIGRAM EVERY 8 WEEKS AS NEEDED
     Route: 065
     Dates: start: 20180521, end: 20180521
  2. INFLECTRA [Suspect]
     Active Substance: INFLIXIMAB-DYYB
     Indication: Pain
     Dosage: 300 MG (FREQUENCY: 0, 2, 6 THEN EVERY 8 WEEKS) - QUANTITY: 28; REFILLS: 11 - NO VIAL COUNT
     Route: 065
  3. INFLECTRA [Suspect]
     Active Substance: INFLIXIMAB-DYYB
     Indication: Immunology test

REACTIONS (6)
  - Hospitalisation [Unknown]
  - Unevaluable event [Unknown]
  - Product prescribing issue [Unknown]
  - Off label use [Unknown]
  - Underdose [Unknown]
  - Off label use [Unknown]
